FAERS Safety Report 20137875 (Version 1)
Quarter: 2021Q4

REPORT INFORMATION
  Report Type: Report from Study
  Country: US (occurrence: US)
  Receive Date: 20211202
  Receipt Date: 20211202
  Transmission Date: 20220303
  Serious: No
  Sender: FDA-Public Use
  Company Number: US-Ipsen Biopharmaceuticals, Inc.-2021-29510

PATIENT
  Age: 76 Year
  Sex: Female

DRUGS (1)
  1. SOMATULINE DEPOT [Suspect]
     Active Substance: LANREOTIDE ACETATE
     Indication: Carcinoid tumour of the small bowel
     Dosage: DOSE, FREQUENCY AND STRENGTH NOT REPORTED
     Route: 058
     Dates: start: 201801

REACTIONS (2)
  - Drug ineffective [Unknown]
  - Product dose omission issue [Unknown]
